FAERS Safety Report 6551001-9 (Version None)
Quarter: 2010Q1

REPORT INFORMATION
  Report Type: 
  Country: None (occurrence: None)
  Receive Date: 20100122
  Receipt Date: 20100122
  Transmission Date: 20100710
  Serious: No
  Sender: FDA-Public Use
  Company Number: None

PATIENT
  Age: 51 Year
  Sex: Male
  Weight: 76 kg

DRUGS (2)
  1. ISONIAZID [Suspect]
     Indication: TUBERCULOSIS
     Dosage: 300 MG EVERY DAY PO
     Route: 048
     Dates: start: 20090715, end: 20090805
  2. PYRIDOXIDE [Suspect]

REACTIONS (4)
  - ANGINA PECTORIS [None]
  - ANGIOEDEMA [None]
  - CHEST DISCOMFORT [None]
  - OROPHARYNGEAL SWELLING [None]
